FAERS Safety Report 14678678 (Version 2)
Quarter: 2018Q4

REPORT INFORMATION
  Report Type: Spontaneous
  Country: FR (occurrence: FR)
  Receive Date: 20180326
  Receipt Date: 20181025
  Transmission Date: 20190204
  Serious: Yes (Other)
  Sender: FDA-Public Use
  Company Number: FR-MERCK KGAA-2044496

PATIENT
  Age: 70 Year
  Sex: Female

DRUGS (1)
  1. EUTHYROX [Suspect]
     Active Substance: LEVOTHYROXINE SODIUM
     Indication: PRODUCT USED FOR UNKNOWN INDICATION

REACTIONS (24)
  - Back pain [None]
  - Tinnitus [None]
  - Decreased activity [None]
  - Musculoskeletal stiffness [None]
  - Visual impairment [None]
  - Anxiety [None]
  - Blood pressure increased [None]
  - Weight bearing difficulty [None]
  - Chest pain [None]
  - Pulmonary pain [None]
  - Mobility decreased [None]
  - Alopecia [None]
  - Insomnia [None]
  - Myalgia [None]
  - Affective disorder [None]
  - Pain in extremity [None]
  - Sensory disturbance [None]
  - Decreased appetite [None]
  - Gastrointestinal disorder [None]
  - Social avoidant behaviour [None]
  - Suicidal ideation [None]
  - Dizziness [None]
  - Asthenia [None]
  - Thirst [None]

NARRATIVE: CASE EVENT DATE: 2017
